FAERS Safety Report 25396133 (Version 1)
Quarter: 2025Q2

REPORT INFORMATION
  Report Type: Spontaneous
  Country: US (occurrence: None)
  Receive Date: 20250603
  Receipt Date: 20250603
  Transmission Date: 20250717
  Serious: Yes (Other)
  Sender: FDA-CTU
  Company Number: None

PATIENT
  Age: 62 Year
  Sex: Female
  Weight: 92.7 kg

DRUGS (3)
  1. CARVYKTI [Suspect]
     Active Substance: CILTACABTAGENE AUTOLEUCEL
     Indication: Plasma cell myeloma recurrent
     Route: 042
     Dates: start: 20250401, end: 20250401
  2. FLUDARABINE [Concomitant]
     Active Substance: FLUDARABINE PHOSPHATE
  3. CYCLOPHOSPHAMIDE [Concomitant]
     Active Substance: CYCLOPHOSPHAMIDE

REACTIONS (12)
  - Febrile neutropenia [None]
  - Cytokine release syndrome [None]
  - Staphylococcal bacteraemia [None]
  - Mental status changes [None]
  - Immune effector cell-associated neurotoxicity syndrome [None]
  - Loss of personal independence in daily activities [None]
  - Speech disorder [None]
  - Gait disturbance [None]
  - Neurotoxicity [None]
  - Aphasia [None]
  - Gait inability [None]
  - Tremor [None]

NARRATIVE: CASE EVENT DATE: 20250503
